FAERS Safety Report 13552815 (Version 1)
Quarter: 2017Q2

REPORT INFORMATION
  Report Type: Spontaneous
  Country: US (occurrence: US)
  Receive Date: 20170516
  Receipt Date: 20170516
  Transmission Date: 20170830
  Serious: Yes (Death)
  Sender: FDA-Public Use
  Company Number: None

PATIENT
  Age: 25 Year
  Sex: Male
  Weight: 84.82 kg

DRUGS (1)
  1. DAPTOMYCIN 50MG/ML POST RECONSTITUTION [Suspect]
     Active Substance: DAPTOMYCIN
     Indication: LIMB CRUSHING INJURY
     Dosage: 520 MG DAILY SLOW IV PUSH
     Route: 042
     Dates: start: 20170514, end: 20170514

REACTIONS (3)
  - Anaphylactic reaction [None]
  - Extra dose administered [None]
  - Overdose [None]

NARRATIVE: CASE EVENT DATE: 20170514
